FAERS Safety Report 19164870 (Version 3)
Quarter: 2021Q4

REPORT INFORMATION
  Report Type: Spontaneous
  Country: US (occurrence: US)
  Receive Date: 20210421
  Receipt Date: 20211022
  Transmission Date: 20220303
  Serious: No
  Sender: FDA-Public Use
  Company Number: US-PARATEK PHARMACEUTICALS, INC.-2021PTK00012

PATIENT
  Age: 52 Year
  Sex: Female

DRUGS (15)
  1. NUZYRA [Suspect]
     Active Substance: OMADACYCLINE
     Indication: Mycobacterial infection
     Dosage: 150 MG, 1X/DAY
     Route: 048
     Dates: start: 20210105, end: 2021
  2. NUZYRA [Suspect]
     Active Substance: OMADACYCLINE
     Dosage: 300 MG, 1X/DAY
     Route: 048
     Dates: start: 2021
  3. CEFOXITIN [Concomitant]
     Active Substance: CEFOXITIN SODIUM
  4. AMIKACIN [Concomitant]
     Active Substance: AMIKACIN
     Dosage: 1200 MG
     Route: 042
  5. AMIKACIN [Concomitant]
     Active Substance: AMIKACIN
     Dosage: 1000 MG
     Dates: end: 20210209
  6. AMIKACIN [Concomitant]
     Active Substance: AMIKACIN
     Dosage: 1200 MG
     Dates: start: 20210210
  7. VITAMIN D3 [Concomitant]
     Active Substance: CHOLECALCIFEROL
  8. ATORVASTATIN [Concomitant]
     Active Substance: ATORVASTATIN
  9. FISH OIL [Concomitant]
     Active Substance: FISH OIL
  10. WARFARIN [Concomitant]
     Active Substance: WARFARIN
  11. ALIGN [Concomitant]
     Active Substance: BIFIDOBACTERIUM LONGUM SUBSP. INFANTIS
  12. COLLAGEN POWDER [Concomitant]
  13. CALCIUM [Concomitant]
     Active Substance: CALCIUM
  14. VITAMIN C [Concomitant]
     Active Substance: ASCORBIC ACID
  15. SINEQUAN [Concomitant]
     Active Substance: DOXEPIN HYDROCHLORIDE

REACTIONS (4)
  - Salivary hypersecretion [Not Recovered/Not Resolved]
  - Nausea [Not Recovered/Not Resolved]
  - Dysgeusia [Not Recovered/Not Resolved]
  - Off label use [Not Recovered/Not Resolved]

NARRATIVE: CASE EVENT DATE: 20210101
